FAERS Safety Report 20616746 (Version 1)
Quarter: 2022Q1

REPORT INFORMATION
  Report Type: Spontaneous
  Country: CA (occurrence: CA)
  Receive Date: 20220321
  Receipt Date: 20220321
  Transmission Date: 20220423
  Serious: Yes (Other)
  Sender: FDA-Public Use
  Company Number: CA-PFIZER INC-202200402185

PATIENT
  Age: 17 Year
  Sex: Female
  Weight: 70 kg

DRUGS (1)
  1. ELELYSO [Suspect]
     Active Substance: TALIGLUCERASE ALFA
     Indication: Gaucher^s disease
     Dosage: 1000 IU, 1 EVERY 2 WEEKS
     Route: 042

REACTIONS (6)
  - Dyspnoea [Unknown]
  - Erythema [Unknown]
  - Hypersensitivity [Unknown]
  - Lip oedema [Unknown]
  - Swelling face [Unknown]
  - Tachypnoea [Unknown]
